FAERS Safety Report 7404637-7 (Version None)
Quarter: 2011Q2

REPORT INFORMATION
  Report Type: 
  Country: None (occurrence: None)
  Receive Date: 20110411
  Receipt Date: 20110401
  Transmission Date: 20111010
  Serious: Yes (Hospitalization)
  Sender: FDA-Public Use
  Company Number: 2006BI010492

PATIENT
  Sex: Female

DRUGS (2)
  1. AVONEX [Suspect]
     Indication: MULTIPLE SCLEROSIS
     Route: 030
     Dates: start: 20050926, end: 20060529
  2. AVONEX [Suspect]
     Route: 030
     Dates: start: 20061001, end: 20101101

REACTIONS (4)
  - INJECTION SITE HAEMATOMA [None]
  - KNEE ARTHROPLASTY [None]
  - PROCEDURAL PAIN [None]
  - OSTEOARTHRITIS [None]
